FAERS Safety Report 8729366 (Version 2)
Quarter: 2014Q1

REPORT INFORMATION
  Report Type: Spontaneous
  Country: US (occurrence: US)
  Receive Date: 20120817
  Receipt Date: 20140106
  Transmission Date: 20141002
  Serious: Yes (Other)
  Sender: FDA-Public Use
  Company Number: US-JNJFOC-20120805180

PATIENT
  Age: 35 Year
  Sex: Female
  Weight: 58.29 kg

DRUGS (14)
  1. SANDOZ FENTANYL TRANSDERMAL SYSTEM [Suspect]
     Indication: ENDOCARDITIS
     Route: 062
     Dates: start: 201110
  2. SANDOZ FENTANYL TRANSDERMAL SYSTEM [Suspect]
     Indication: ENDOCARDITIS
     Route: 062
     Dates: start: 201109, end: 201110
  3. SANDOZ FENTANYL TRANSDERMAL SYSTEM [Suspect]
     Indication: FUNGAL INFECTION
     Route: 062
     Dates: start: 201110
  4. SANDOZ FENTANYL TRANSDERMAL SYSTEM [Suspect]
     Indication: FUNGAL INFECTION
     Route: 062
     Dates: start: 201109, end: 201110
  5. SANDOZ FENTANYL TRANSDERMAL SYSTEM [Suspect]
     Indication: CANCER PAIN
     Route: 062
     Dates: start: 201109, end: 201110
  6. SANDOZ FENTANYL TRANSDERMAL SYSTEM [Suspect]
     Indication: CANCER PAIN
     Route: 062
     Dates: start: 201110
  7. PENICILLIN [Concomitant]
     Indication: ENDOCARDITIS
     Route: 048
     Dates: start: 2006
  8. DIFLUCAN [Concomitant]
     Indication: FUNGAL INFECTION
     Route: 048
     Dates: start: 201106
  9. DILTIAZEM ER [Concomitant]
     Indication: SUPRAVENTRICULAR TACHYCARDIA
     Route: 048
     Dates: start: 201007
  10. PERCOCET [Concomitant]
     Indication: BREAKTHROUGH PAIN
     Dosage: 1-2 EVERY 6 HOURS AS NEEDED
     Route: 048
     Dates: start: 201107
  11. POTASSIUM [Concomitant]
     Indication: BLOOD POTASSIUM DECREASED
     Dosage: AS NEEDED
     Route: 048
  12. BABY ASA [Concomitant]
     Indication: CARDIAC DISORDER
     Dosage: 1-2 EVERY 6 HOURS AS NEEDED
     Route: 048
  13. VALIUM [Concomitant]
     Indication: ANXIETY
     Route: 048
  14. PHENERGAN [Concomitant]
     Indication: NAUSEA
     Route: 048

REACTIONS (12)
  - Pruritus generalised [Not Recovered/Not Resolved]
  - Malaise [Unknown]
  - Vomiting [Unknown]
  - Paraesthesia [Unknown]
  - Heat exhaustion [Unknown]
  - Dehydration [Unknown]
  - Viral infection [Unknown]
  - Gastric disorder [Unknown]
  - Drug effect incomplete [Not Recovered/Not Resolved]
  - Product quality issue [Recovered/Resolved]
  - Drug ineffective [Recovered/Resolved]
  - Product packaging quantity issue [Unknown]
